FAERS Safety Report 6179839-0 (Version None)
Quarter: 2009Q2

REPORT INFORMATION
  Report Type: 
  Country: None (occurrence: None)
  Receive Date: 20090505
  Receipt Date: 20071206
  Transmission Date: 20091009
  Serious: No
  Sender: FDA-Public Use
  Company Number: FR-ALEXION-A200700121

PATIENT

DRUGS (8)
  1. SOLIRIS [Suspect]
     Indication: PAROXYSMAL NOCTURNAL HAEMOGLOBINURIA
     Dosage: 600 MG, SINGLE
     Route: 042
     Dates: start: 20070101, end: 20070101
  2. SOLIRIS [Suspect]
     Dosage: 600 MG, SINGLE
     Route: 042
     Dates: start: 20070101, end: 20070101
  3. SOLIRIS [Suspect]
     Dosage: 600 MG, SINGLE
     Route: 042
     Dates: start: 20070101, end: 20070101
  4. SOLIRIS [Suspect]
     Dosage: 600 MG, SINGLE
     Route: 042
     Dates: start: 20070101, end: 20070101
  5. SOLIRIS [Suspect]
     Dosage: 900 MG, SINGLE
     Route: 042
     Dates: start: 20071101, end: 20071101
  6. ORACILLINE [Concomitant]
     Dosage: UNK, UNK
  7. HYPERIUM [Concomitant]
     Indication: HYPERTENSION
     Dosage: UNK, UNK
  8. ZANIDIP [Concomitant]
     Indication: HYPERTENSION
     Dosage: UNK, UNK

REACTIONS (2)
  - BLOOD BILIRUBIN INCREASED [None]
  - PRURITUS GENERALISED [None]
